FAERS Safety Report 10242030 (Version 1)
Quarter: 2014Q2

REPORT INFORMATION
  Report Type: Spontaneous
  Country: US (occurrence: US)
  Receive Date: 20140617
  Receipt Date: 20140617
  Transmission Date: 20141212
  Serious: No
  Sender: FDA-Public Use
  Company Number: US-B.I. PHARMACEUTICALS,INC./RIDGEFIELD-2014-BI-25998BP

PATIENT
  Age: 50 Year
  Sex: Female

DRUGS (4)
  1. COMBIVENT [Suspect]
     Indication: PRODUCT USED FOR UNKNOWN INDICATION
     Dosage: DOSE PER APPLICATION: 20 MCG / 100 MCG; DAILY DOSE: 80 MCG/400 MCG
     Route: 055
     Dates: start: 201401
  2. STEROID [Concomitant]
     Indication: LUNG NEOPLASM MALIGNANT
     Route: 048
     Dates: start: 201308
  3. ALLEGRA [Concomitant]
     Indication: DYSPNOEA
     Dosage: 1 ANZ
     Route: 048
  4. UNKNOWN MEDICATION [Concomitant]
     Indication: DYSPNOEA
     Route: 055

REACTIONS (1)
  - Tinnitus [Not Recovered/Not Resolved]
